FAERS Safety Report 8842141 (Version 2)
Quarter: 2013Q1

REPORT INFORMATION
  Report Type: Spontaneous
  Country: BR (occurrence: BR)
  Receive Date: 20121016
  Receipt Date: 20130219
  Transmission Date: 20140127
  Serious: Yes (Hospitalization, Other)
  Sender: FDA-Public Use
  Company Number: PHHY2012BR091420

PATIENT
  Sex: Female

DRUGS (2)
  1. DIOVAN AMLO FIX [Suspect]
     Indication: HYPERTENSION
     Dosage: 1 DF (160 MG VALS AND 5 MG AMLO), DAILY
     Route: 048
  2. INSULIN [Concomitant]

REACTIONS (8)
  - Pneumonia [Recovered/Resolved]
  - Pleural effusion [Recovered/Resolved]
  - Malaise [Not Recovered/Not Resolved]
  - Hyperglycaemia [Recovering/Resolving]
  - Cardiac failure [Recovering/Resolving]
  - Renal disorder [Recovering/Resolving]
  - Blood potassium increased [Recovering/Resolving]
  - Blood pressure increased [Recovering/Resolving]
